FAERS Safety Report 18208637 (Version 14)
Quarter: 2021Q1

REPORT INFORMATION
  Report Type: Spontaneous
  Country: US (occurrence: US)
  Receive Date: 20200828
  Receipt Date: 20210212
  Transmission Date: 20210419
  Serious: Yes (Other)
  Sender: FDA-Public Use
  Company Number: US-PFIZER INC-2020334461

PATIENT
  Age: 63 Year
  Sex: Male

DRUGS (1)
  1. SILDENAFIL CITRATE. [Suspect]
     Active Substance: SILDENAFIL CITRATE
     Indication: ERECTILE DYSFUNCTION
     Dosage: UNK; (USE TWO OF THE GREENSTONE TO EQUAL ONE OF THE VIAGRA)
     Route: 048

REACTIONS (7)
  - Accident [Unknown]
  - Joint dislocation [Unknown]
  - Drug ineffective [Unknown]
  - Therapeutic product effect variable [Unknown]
  - Limb crushing injury [Unknown]
  - Peripheral swelling [Unknown]
  - Pain in extremity [Unknown]
